FAERS Safety Report 23934179 (Version 1)
Quarter: 2024Q2

REPORT INFORMATION
  Report Type: Report from Study
  Country: US (occurrence: US)
  Receive Date: 20240603
  Receipt Date: 20240603
  Transmission Date: 20240716
  Serious: No
  Sender: FDA-Public Use
  Company Number: US-AGIOS-2405US03763

PATIENT
  Sex: Male

DRUGS (1)
  1. MITAPIVAT [Suspect]
     Active Substance: MITAPIVAT
     Indication: Hereditary haemolytic anaemia
     Dosage: 50 MILLIGRAM, QD
     Route: 048

REACTIONS (3)
  - Treatment noncompliance [Unknown]
  - Therapy change [Unknown]
  - Off label use [Unknown]
